FAERS Safety Report 4350346-0 (Version None)
Quarter: 2004Q2

REPORT INFORMATION
  Report Type: 
  Country: None (occurrence: None)
  Receive Date: 20040427
  Receipt Date: 20031007
  Transmission Date: 20050107
  Serious: No
  Sender: FDA-Public Use
  Company Number: 000661

PATIENT
  Age: 87 Year
  Sex: Female

DRUGS (7)
  1. ZEVALIN [Suspect]
     Indication: NON-HODGKIN'S LYMPHOMA
     Dosage: SEE IMAGE
     Dates: start: 20030701, end: 20030701
  2. ZEVALIN [Suspect]
     Indication: NON-HODGKIN'S LYMPHOMA
     Dosage: SEE IMAGE
     Dates: start: 20030701, end: 20030701
  3. ZEVALIN [Suspect]
     Indication: NON-HODGKIN'S LYMPHOMA
     Dosage: SEE IMAGE
     Dates: start: 20030708, end: 20030708
  4. ZEVALIN [Suspect]
     Indication: NON-HODGKIN'S LYMPHOMA
     Dosage: SEE IMAGE
     Dates: start: 20030708, end: 20030708
  5. ZEVALIN [Suspect]
  6. ZEVALIN [Suspect]
  7. .. [Suspect]

REACTIONS (3)
  - DERMATITIS BULLOUS [None]
  - DISEASE PROGRESSION [None]
  - THROMBOCYTOPENIA [None]
